FAERS Safety Report 9503514 (Version 2)
Quarter: 2013Q3

REPORT INFORMATION
  Report Type: Spontaneous
  Country: US (occurrence: US)
  Receive Date: 20130906
  Receipt Date: 20130916
  Transmission Date: 20140515
  Serious: Yes (Hospitalization)
  Sender: FDA-Public Use
  Company Number: US-BAYER-2013-107188

PATIENT
  Age: 61 Year
  Sex: Female

DRUGS (1)
  1. CLIMARA [Suspect]
     Indication: MENOPAUSE
     Dosage: UNK
     Route: 062
     Dates: start: 2009, end: 201305

REACTIONS (3)
  - Intestinal perforation [None]
  - Application site pruritus [None]
  - Abdominal distension [None]
